FAERS Safety Report 9015509 (Version 1)
Quarter: 2013Q1

REPORT INFORMATION
  Report Type: Spontaneous
  Country: US (occurrence: None)
  Receive Date: 20130102
  Receipt Date: 20130102
  Transmission Date: 20140127
  Serious: Yes (Other)
  Sender: FDA-Public Use
  Company Number: ABR_00769_2012

PATIENT
  Age: 28 Year
  Sex: Female

DRUGS (1)
  1. ERYTHROMYCIN [Suspect]
     Indication: PRODUCT USED FOR UNKNOWN INDICATION
     Dosage: 1X/6 HOURS
     Route: 048
     Dates: start: 20121219, end: 20121220

REACTIONS (3)
  - Chest discomfort [None]
  - Dyspnoea [None]
  - Tablet physical issue [None]
